FAERS Safety Report 4489266-X (Version None)
Quarter: 2004Q4

REPORT INFORMATION
  Report Type: 
  Country: None (occurrence: None)
  Receive Date: 20041029
  Receipt Date: 20041018
  Transmission Date: 20050328
  Serious: Yes (Other)
  Sender: FDA-Public Use
  Company Number: US-AMGEN-US096050

PATIENT
  Sex: Female

DRUGS (3)
  1. ENBREL [Suspect]
     Indication: RHEUMATOID ARTHRITIS
     Route: 058
     Dates: start: 19990615, end: 20040914
  2. ARAVA [Concomitant]
     Dates: start: 20020301
  3. METHOTREXATE [Concomitant]
     Dates: start: 19930101

REACTIONS (2)
  - OPTIC ISCHAEMIC NEUROPATHY [None]
  - TINNITUS [None]
